FAERS Safety Report 4393177-8 (Version None)
Quarter: 2004Q3

REPORT INFORMATION
  Report Type: 
  Country: None (occurrence: None)
  Receive Date: 20040702
  Receipt Date: 20040628
  Transmission Date: 20050211
  Serious: Yes (Death, Life-Threatening, Hospitalization, Disabling)
  Sender: FDA-Public Use
  Company Number: 2003-08-0741

PATIENT
  Age: 43 Year
  Sex: Female
  Weight: 89 kg

DRUGS (4)
  1. PEG-INTRON [Suspect]
     Indication: HEPATITIS C
     Dosage: 45 MCG QWK SUBCUTANEOUS
     Route: 058
     Dates: start: 20030611
  2. REBETOL [Suspect]
     Indication: HEPATITIS C
     Dosage: 600 MG QD ORAL
     Route: 048
     Dates: start: 20030611
  3. SPIRONOLACTONE [Concomitant]
  4. FUROSEMIDE [Concomitant]

REACTIONS (8)
  - ALANINE AMINOTRANSFERASE INCREASED [None]
  - ASCITES [None]
  - BLOOD BILIRUBIN INCREASED [None]
  - EXANTHEM [None]
  - HEPATORENAL SYNDROME [None]
  - NEUTROPHIL COUNT INCREASED [None]
  - PERITONITIS BACTERIAL [None]
  - SEPTIC SHOCK [None]
